FAERS Safety Report 10310976 (Version 1)
Quarter: 2014Q3

REPORT INFORMATION
  Report Type: Spontaneous
  Country: CA (occurrence: CA)
  Receive Date: 20140717
  Receipt Date: 20140717
  Transmission Date: 20150326
  Serious: Yes (Other)
  Sender: FDA-Public Use
  Company Number: CA-B.I. PHARMACEUTICALS,INC./RIDGEFIELD-2014-BI-32243CN

PATIENT
  Age: 94 Year
  Sex: Female
  Weight: 57 kg

DRUGS (3)
  1. PRADAXA [Suspect]
     Active Substance: DABIGATRAN ETEXILATE MESYLATE
     Indication: PRODUCT USED FOR UNKNOWN INDICATION
     Dosage: 220 MG
     Route: 048
  2. CITALOPRAM [Concomitant]
     Active Substance: CITALOPRAM HYDROBROMIDE
     Route: 065
  3. TERBINAFINE [Concomitant]
     Active Substance: TERBINAFINE
     Route: 065

REACTIONS (3)
  - Aggression [Recovered/Resolved]
  - Condition aggravated [Recovered/Resolved]
  - Confusional state [Recovered/Resolved]
